FAERS Safety Report 14488312 (Version 2)
Quarter: 2018Q1

REPORT INFORMATION
  Report Type: Spontaneous
  Country: US (occurrence: US)
  Receive Date: 20180205
  Receipt Date: 20180205
  Transmission Date: 20180509
  Serious: Yes (Other)
  Sender: FDA-Public Use
  Company Number: US-CELGENEUS-USA-20180110851

PATIENT
  Sex: Female

DRUGS (1)
  1. OTEZLA [Suspect]
     Active Substance: APREMILAST
     Indication: PSORIASIS
     Dosage: 60 MILLIGRAM
     Route: 048
     Dates: start: 201712, end: 20180126

REACTIONS (4)
  - Psoriasis [Unknown]
  - Nausea [Recovered/Resolved]
  - Type 2 diabetes mellitus [Unknown]
  - Diarrhoea [Recovered/Resolved]
